FAERS Safety Report 19149433 (Version 3)
Quarter: 2021Q2

REPORT INFORMATION
  Report Type: Report from Study
  Country: JP (occurrence: JP)
  Receive Date: 20210417
  Receipt Date: 20210601
  Transmission Date: 20210717
  Serious: Yes (Life-Threatening)
  Sender: FDA-Public Use
  Company Number: JP-CELLTRION INC.-2021JP004972

PATIENT

DRUGS (12)
  1. CT?P6 [Suspect]
     Active Substance: INVESTIGATIONAL BIOSIMILARS
     Indication: HER2 POSITIVE GASTRIC CANCER
     Dosage: 525 MILLIGRAM, QD
     Route: 041
     Dates: start: 20201113, end: 20201113
  2. CT?P6 [Suspect]
     Active Substance: INVESTIGATIONAL BIOSIMILARS
     Dosage: 359 MILLIGRAM, QD
     Route: 041
     Dates: start: 20210125, end: 20210125
  3. OXALIPLATIN. [Suspect]
     Active Substance: OXALIPLATIN
     Dosage: 120 MILLIGRAM, QD
     Route: 041
     Dates: start: 20201221, end: 20201221
  4. FEBURIC [Concomitant]
     Active Substance: FEBUXOSTAT
     Indication: HYPERTENSION
     Dosage: UNK
  5. OXALIPLATIN. [Suspect]
     Active Substance: OXALIPLATIN
     Indication: HER2 POSITIVE GASTRIC CANCER
     Dosage: 134 MILLIGRAM, QD
     Route: 041
     Dates: start: 20201113, end: 20201113
  6. TEGAFUR GIMERACIL AND OTERACIL POTASSIUM [Suspect]
     Active Substance: GIMERACIL\OTERACIL\TEGAFUR
     Dosage: 100 MILLIGRAM, QD
     Route: 048
     Dates: start: 20210125, end: 20210208
  7. TEGAFUR GIMERACIL AND OTERACIL POTASSIUM [Suspect]
     Active Substance: GIMERACIL\OTERACIL\TEGAFUR
     Dosage: 100 MILLIGRAM, QD
     Route: 048
     Dates: start: 20210215, end: 20210301
  8. OLMESARTAN OD [Concomitant]
     Active Substance: OLMESARTAN MEDOXOMIL
     Indication: HYPERTENSION
     Dosage: UNK
  9. CT?P6 [Suspect]
     Active Substance: INVESTIGATIONAL BIOSIMILARS
     Dosage: 359 MILLIGRAM, QD
     Route: 041
     Dates: start: 20210215, end: 20210215
  10. TEGAFUR GIMERACIL AND OTERACIL POTASSIUM [Suspect]
     Active Substance: GIMERACIL\OTERACIL\TEGAFUR
     Indication: HER2 POSITIVE GASTRIC CANCER
     Dosage: 100 MILLIGRAM, QD
     Route: 048
     Dates: start: 20201113, end: 20201127
  11. TEGAFUR GIMERACIL AND OTERACIL POTASSIUM [Suspect]
     Active Substance: GIMERACIL\OTERACIL\TEGAFUR
     Dosage: 100 MILLIGRAM, QD
     Route: 048
     Dates: start: 20201221, end: 20210104
  12. CT?P6 [Suspect]
     Active Substance: INVESTIGATIONAL BIOSIMILARS
     Dosage: 359.4 MILLIGRAM, QD
     Route: 041
     Dates: start: 20201221, end: 20201221

REACTIONS (8)
  - Constipation [Recovered/Resolved]
  - Neutrophil count decreased [Not Recovered/Not Resolved]
  - White blood cell count decreased [Recovered/Resolved]
  - Underdose [Unknown]
  - Off label use [Unknown]
  - Infusion related reaction [Recovered/Resolved]
  - Tumour perforation [Recovered/Resolved]
  - Overdose [Unknown]

NARRATIVE: CASE EVENT DATE: 20201113
